FAERS Safety Report 15149984 (Version 3)
Quarter: 2018Q3

REPORT INFORMATION
  Report Type: Report from Study
  Country: CN (occurrence: CN)
  Receive Date: 20180716
  Receipt Date: 20180830
  Transmission Date: 20181010
  Serious: Yes (Hospitalization)
  Sender: FDA-Public Use
  Company Number: CN-ROCHE-2152697

PATIENT
  Age: 80 Year
  Sex: Male
  Weight: 75 kg

DRUGS (34)
  1. METFORMIN HYDROCHLORIDE. [Concomitant]
     Active Substance: METFORMIN HYDROCHLORIDE
     Indication: HYPOGLYCAEMIA
     Dosage: EXTENDED?RELEASE TABLETS
     Route: 048
     Dates: start: 20180601, end: 20180721
  2. NIFEDIPINE. [Concomitant]
     Active Substance: NIFEDIPINE
     Route: 048
     Dates: start: 20180531, end: 20180720
  3. POTASSIUM CHLORIDE. [Concomitant]
     Active Substance: POTASSIUM CHLORIDE
     Dosage: POTASSIUM SUPPLEMENT
     Route: 048
     Dates: start: 20180627, end: 20180627
  4. OMEPRAZOLE SODIUM [Concomitant]
     Active Substance: OMEPRAZOLE SODIUM
     Dosage: INHIBITION OF GASTRIC ACID
     Route: 042
     Dates: start: 20180713, end: 20180715
  5. PIPERACILLIN SODIUM/TAZOBACTAM [Concomitant]
     Active Substance: PIPERACILLIN SODIUM\TAZOBACTAM SODIUM
     Dosage: ANTI INFECTION
     Route: 042
     Dates: start: 20180716, end: 20180716
  6. FURSEMIDE [Concomitant]
     Active Substance: FUROSEMIDE
     Route: 042
     Dates: start: 20180702, end: 20180702
  7. NIFEDIPINE. [Concomitant]
     Active Substance: NIFEDIPINE
     Indication: HYPOTENSION
     Dosage: CONTROLLED RELEASED TABLETS
     Route: 048
     Dates: start: 20180601, end: 20180720
  8. BUMETANIDE. [Concomitant]
     Active Substance: BUMETANIDE
     Route: 042
     Dates: start: 20180702, end: 20180704
  9. TROPISETRON HYDROCHLORIDE [Concomitant]
     Active Substance: TROPISETRON HYDROCHLORIDE
     Route: 042
     Dates: start: 20180702, end: 20180703
  10. TORSEMIDE. [Concomitant]
     Active Substance: TORSEMIDE
     Indication: POLYURIA
     Route: 042
     Dates: start: 20180630, end: 20180630
  11. CISPLATIN. [Suspect]
     Active Substance: CISPLATIN
     Indication: TRANSITIONAL CELL CARCINOMA
     Dosage: MAST RECENT DOSE ON 26/JUN/2018.
     Route: 042
     Dates: start: 20180626
  12. BROMHEXINE HYDROCHLORIDE [Concomitant]
     Active Substance: BROMHEXINE HYDROCHLORIDE
     Indication: PRODUCTIVE COUGH
     Route: 045
     Dates: start: 20180710, end: 20180719
  13. BUMETANIDE. [Concomitant]
     Active Substance: BUMETANIDE
     Route: 042
     Dates: start: 20180706, end: 20180708
  14. GLUCOSE/SODIUM CHLORIDE [Concomitant]
     Active Substance: DEXTROSE\SODIUM CHLORIDE
     Dosage: 5% GLUCOSE AND SODIUM CHLORIDE AS FLUID INFUSION
     Route: 042
     Dates: start: 20180626, end: 20180626
  15. ACETYLCYSTEINE. [Concomitant]
     Active Substance: ACETYLCYSTEINE
     Indication: PRODUCTIVE COUGH
     Route: 045
     Dates: start: 20180630, end: 20180630
  16. METHYLPREDNISOLONE SODIUM SUCCINATE. [Concomitant]
     Active Substance: METHYLPREDNISOLONE SODIUM SUCCINATE
     Dosage: ALLEVIATING AIRWAY SPASM
     Route: 042
     Dates: start: 20180716, end: 20180716
  17. POTASSIUM CHLORIDE. [Concomitant]
     Active Substance: POTASSIUM CHLORIDE
     Dosage: POTASSIUM SUPPLEMENT
     Route: 048
     Dates: start: 20180627, end: 20180702
  18. POTASSIUM CHLORIDE. [Concomitant]
     Active Substance: POTASSIUM CHLORIDE
     Route: 042
     Dates: start: 20180630, end: 20180702
  19. TROPISETRON HYDROCHLORIDE [Concomitant]
     Active Substance: TROPISETRON HYDROCHLORIDE
     Indication: PROPHYLAXIS OF NAUSEA AND VOMITING
     Route: 042
     Dates: start: 20180626, end: 20180626
  20. FURSEMIDE [Concomitant]
     Active Substance: FUROSEMIDE
     Indication: POLYURIA
     Route: 042
     Dates: start: 20180629, end: 20180629
  21. DEXAMETHASONE SODIUM PHOSPHATE. [Concomitant]
     Active Substance: DEXAMETHASONE SODIUM PHOSPHATE
     Dosage: ANTI ALLERGY
     Route: 042
     Dates: start: 20180716, end: 20180716
  22. GEMCITABINE [Suspect]
     Active Substance: GEMCITABINE\GEMCITABINE HYDROCHLORIDE
     Indication: TRANSITIONAL CELL CARCINOMA
     Dosage: DAY 1 AND DAY 8 OF EACH 21?DAY CYCLE.?MOST RECENT DOSE 1800 MG/M^2 ON 04/JUL/2018
     Route: 042
     Dates: start: 20180626
  23. OMEPRAZOLE SODIUM [Concomitant]
     Active Substance: OMEPRAZOLE SODIUM
     Route: 042
     Dates: start: 20180716, end: 20180716
  24. BUMETANIDE. [Concomitant]
     Active Substance: BUMETANIDE
     Indication: POLYURIA
     Route: 042
     Dates: start: 20180626, end: 20180626
  25. METOCLOPRAMIDE DIHYDROCHLORIDE [Concomitant]
     Route: 042
     Dates: start: 20180704, end: 20180704
  26. SODIUM PHOSPHATES ENEMA [Concomitant]
     Route: 054
     Dates: start: 20180711, end: 20180711
  27. BUMETANIDE. [Concomitant]
     Active Substance: BUMETANIDE
     Route: 042
     Dates: start: 20180707, end: 20180707
  28. FURSEMIDE [Concomitant]
     Active Substance: FUROSEMIDE
     Route: 042
     Dates: start: 20180716, end: 20180716
  29. OMEPRAZOLE SODIUM [Concomitant]
     Active Substance: OMEPRAZOLE SODIUM
     Dosage: PREVENTION OF STRESS ULCER
     Route: 042
     Dates: start: 20180716, end: 20180716
  30. GLUCOSE/SODIUM CHLORIDE [Concomitant]
     Active Substance: DEXTROSE\SODIUM CHLORIDE
     Dosage: 5% GLUCOSE AND SODIUM CHLORIDE AS FLUID INFUSION
     Route: 042
     Dates: start: 20180704, end: 20180704
  31. TROPISETRON [Concomitant]
     Active Substance: TROPISETRON
     Indication: NAUSEA
     Route: 042
     Dates: start: 20180702, end: 20180703
  32. SODIUM PHOSPHATES ENEMA [Concomitant]
     Dosage: SODIUM PHOSPHATE SALT ENEMA FOR MOISTENING INTESTINES AND BOWEL MOVEMENT
     Route: 054
     Dates: start: 20180704, end: 20180704
  33. METOCLOPRAMIDE DIHYDROCHLORIDE [Concomitant]
     Indication: PROPHYLAXIS OF NAUSEA AND VOMITING
     Route: 042
     Dates: start: 20180626, end: 20180626
  34. ATEZOLIZUMAB. [Suspect]
     Active Substance: ATEZOLIZUMAB
     Indication: TRANSITIONAL CELL CARCINOMA
     Dosage: MOST RECENT DOSE ON 26/JUN/2018.
     Route: 042
     Dates: start: 20180626

REACTIONS (1)
  - Platelet count decreased [Recovered/Resolved]

NARRATIVE: CASE EVENT DATE: 20180630
